FAERS Safety Report 19418124 (Version 1)
Quarter: 2021Q2

REPORT INFORMATION
  Report Type: Spontaneous
  Country: US (occurrence: US)
  Receive Date: 20210615
  Receipt Date: 20210615
  Transmission Date: 20210717
  Serious: No
  Sender: FDA-Public Use
  Company Number: None

PATIENT
  Age: 23 Year
  Sex: Female
  Weight: 72.3 kg

DRUGS (2)
  1. MYORISAN [Concomitant]
     Active Substance: ISOTRETINOIN
     Dates: start: 20210303, end: 20210614
  2. ISOTRETINOIN. [Suspect]
     Active Substance: ISOTRETINOIN
     Indication: ACNE
     Route: 048
     Dates: start: 20210303, end: 20210614

REACTIONS (1)
  - Pregnancy [None]

NARRATIVE: CASE EVENT DATE: 20210614
